FAERS Safety Report 10145578 (Version 3)
Quarter: 2014Q2

REPORT INFORMATION
  Report Type: Spontaneous
  Country: US (occurrence: US)
  Receive Date: 20140501
  Receipt Date: 20140623
  Transmission Date: 20141212
  Serious: Yes (Hospitalization)
  Sender: FDA-Public Use
  Company Number: US-JNJFOC-20140416413

PATIENT
  Sex: Male

DRUGS (7)
  1. INVEGA SUSTENNA [Suspect]
     Indication: SCHIZOPHRENIA
     Route: 030
     Dates: start: 20121124
  2. INVEGA SUSTENNA [Suspect]
     Indication: SCHIZOPHRENIA
     Dosage: 237
     Route: 030
     Dates: start: 20130112, end: 20140503
  3. CLONIDINE [Suspect]
     Indication: INSOMNIA
     Route: 048
     Dates: start: 20050503
  4. CLONIDINE [Suspect]
     Indication: INSOMNIA
     Dosage: 0.3
     Route: 048
     Dates: start: 20130112, end: 20140603
  5. CLONAZEPAM [Concomitant]
     Indication: ANXIETY
     Route: 065
     Dates: start: 20100225, end: 20140602
  6. TEGRETOL [Concomitant]
     Route: 048
     Dates: start: 20110513, end: 20140602
  7. LORAZEPAM [Concomitant]
     Route: 048

REACTIONS (1)
  - Cerebrovascular accident [Recovered/Resolved with Sequelae]
